FAERS Safety Report 13159306 (Version 1)
Quarter: 2017Q1

REPORT INFORMATION
  Report Type: Spontaneous
  Country: US (occurrence: US)
  Receive Date: 20170127
  Receipt Date: 20170127
  Transmission Date: 20170428
  Serious: Yes (Hospitalization)
  Sender: FDA-Public Use
  Company Number: US-SA-2017SA012110

PATIENT
  Sex: Male

DRUGS (2)
  1. ENOXAPARIN SODIUM. [Suspect]
     Active Substance: ENOXAPARIN SODIUM
     Indication: DEEP VEIN THROMBOSIS POSTOPERATIVE
     Route: 065
  2. WARFARIN SODIUM. [Suspect]
     Active Substance: WARFARIN SODIUM
     Indication: DEEP VEIN THROMBOSIS POSTOPERATIVE
     Route: 065

REACTIONS (7)
  - Spinal cord compression [Recovered/Resolved]
  - Muscular weakness [Recovered/Resolved]
  - Wound haematoma [Recovered/Resolved]
  - Swelling [Recovered/Resolved]
  - Tenderness [Recovered/Resolved]
  - Back pain [Recovered/Resolved]
  - International normalised ratio increased [Recovered/Resolved]
